FAERS Safety Report 11592601 (Version 1)
Quarter: 2015Q4

REPORT INFORMATION
  Report Type: Spontaneous
  Country: IT (occurrence: IT)
  Receive Date: 20151005
  Receipt Date: 20151005
  Transmission Date: 20160304
  Serious: Yes (Other)
  Sender: FDA-Public Use
  Company Number: IT-ACTAVIS-2015-21199

PATIENT
  Age: 75 Year
  Sex: Male

DRUGS (2)
  1. CAPECITABINE (UNKNOWN) [Suspect]
     Active Substance: CAPECITABINE
     Indication: METASTASES TO LYMPH NODES
     Dosage: 500 MG, TID
     Route: 048
  2. GEMCITABINE [Suspect]
     Active Substance: GEMCITABINE\GEMCITABINE HYDROCHLORIDE
     Indication: MALIGNANT NEOPLASM OF AMPULLA OF VATER
     Dosage: 1000 MG/M2, CYCLICAL
     Route: 041
     Dates: end: 201109

REACTIONS (4)
  - Anaemia [Unknown]
  - Neutropenia [Unknown]
  - Drug ineffective [Unknown]
  - Thrombocytopenia [Unknown]
